FAERS Safety Report 4579485-6 (Version None)
Quarter: 2005Q1

REPORT INFORMATION
  Report Type: 
  Country: None (occurrence: None)
  Receive Date: 20050209
  Receipt Date: 20041118
  Transmission Date: 20050727
  Serious: Yes (Hospitalization)
  Sender: FDA-Public Use
  Company Number: 05-027

PATIENT
  Age: 47 Year
  Sex: Female

DRUGS (2)
  1. CAPOTEN [Suspect]
     Indication: ESSENTIAL HYPERTENSION
     Dosage: 50 MG, DAILY, ORALLY
     Route: 048
     Dates: start: 20040518, end: 20040703
  2. SODIUM DICLOPENAC [Concomitant]

REACTIONS (1)
  - HEPATITIS [None]
